FAERS Safety Report 5874721-8 (Version None)
Quarter: 2008Q3

REPORT INFORMATION
  Report Type: 
  Country: None (occurrence: None)
  Receive Date: 20080908
  Receipt Date: 20080908
  Transmission Date: 20090109
  Serious: Yes (Other)
  Sender: FDA-Public Use
  Company Number: None

PATIENT
  Sex: Male
  Weight: 99.7913 kg

DRUGS (10)
  1. LIPITOR [Suspect]
     Indication: BLOOD CHOLESTEROL INCREASED
     Dosage: 20 MG DAILY ORAL
     Route: 048
     Dates: start: 20080605
  2. SPIRIVA [Concomitant]
  3. FUROSEMIDE [Concomitant]
  4. POTASSIUM CHLORIDE [Concomitant]
  5. METOPROLOL TARTRATE [Concomitant]
  6. ASPIRIN [Concomitant]
  7. GLUCOSAMINE [Concomitant]
  8. TERASOCIN [Concomitant]
  9. SULIDANC [Concomitant]
  10. FAMOTIDINE [Concomitant]

REACTIONS (1)
  - ALOPECIA [None]
